FAERS Safety Report 5930544-2 (Version None)
Quarter: 2008Q4

REPORT INFORMATION
  Report Type: 
  Country: None (occurrence: None)
  Receive Date: 20081026
  Receipt Date: 20081024
  Transmission Date: 20090506
  Serious: Yes (Hospitalization)
  Sender: FDA-Public Use
  Company Number: PHHO2002ES08335

PATIENT
  Sex: Female
  Weight: 75 kg

DRUGS (2)
  1. NEORAL [Suspect]
     Indication: RENAL TRANSPLANT
  2. PLACEBO PLACEBO [Suspect]
     Indication: RENAL TRANSPLANT
     Route: 048
     Dates: start: 20021006

REACTIONS (1)
  - HAEMOLYSIS [None]
